FAERS Safety Report 4480918-4 (Version None)
Quarter: 2004Q4

REPORT INFORMATION
  Report Type: 
  Country: None (occurrence: None)
  Receive Date: 20041020
  Receipt Date: 20041020
  Transmission Date: 20050328
  Serious: Yes (Hospitalization)
  Sender: FDA-Public Use
  Company Number: None

PATIENT
  Age: 21 Year
  Sex: Female
  Weight: 60 kg

DRUGS (2)
  1. LAMICTAL ON THAT ON , REACHED 25 MG BID [Suspect]
     Dosage: ON THAT ON , REACHED 25 MG BID PO
     Route: 048
  2. DEPAKOTE [Suspect]
     Dosage: 250 MG BID ON WEEK 6 PO
     Route: 048

REACTIONS (1)
  - STEVENS-JOHNSON SYNDROME [None]
